FAERS Safety Report 12904916 (Version 3)
Quarter: 2016Q4

REPORT INFORMATION
  Report Type: Report from Study
  Country: BR (occurrence: BR)
  Receive Date: 20161102
  Receipt Date: 20161129
  Transmission Date: 20170207
  Serious: Yes (Other)
  Sender: FDA-Public Use
  Company Number: PHHY2016BR136759

PATIENT
  Sex: Male
  Weight: 54 kg

DRUGS (2)
  1. EXJADE [Suspect]
     Active Substance: DEFERASIROX
     Dosage: 2125 MG, QD (4 TABLETS OF 500 MG AND 1 OF 125 MG)
     Route: 048
  2. EXJADE [Suspect]
     Active Substance: DEFERASIROX
     Indication: THALASSAEMIA BETA
     Dosage: 2000 MG, QD (4 TABLETS OF 500 MG)
     Route: 048

REACTIONS (11)
  - Weight decreased [Recovered/Resolved]
  - Blood urea abnormal [Recovered/Resolved]
  - Dyspnoea [Recovered/Resolved]
  - Nephrolithiasis [Recovered/Resolved]
  - Blood creatinine abnormal [Recovered/Resolved]
  - Allergic transfusion reaction [Recovered/Resolved]
  - Pruritus generalised [Recovered/Resolved]
  - Drug ineffective [Unknown]
  - Muscle spasms [Recovered/Resolved]
  - Abdominal pain [Recovered/Resolved]
  - Generalised erythema [Recovered/Resolved]

NARRATIVE: CASE EVENT DATE: 2016
